FAERS Safety Report 13771811 (Version 1)
Quarter: 2017Q3

REPORT INFORMATION
  Report Type: Spontaneous
  Country: US (occurrence: US)
  Receive Date: 20170720
  Receipt Date: 20170720
  Transmission Date: 20171127
  Serious: Yes (Disabling)
  Sender: FDA-Public Use
  Company Number: US-ALKABELLO-2017AA002526

PATIENT
  Sex: Female

DRUGS (4)
  1. AMINO ACIDS NOS [Suspect]
     Active Substance: AMINO ACIDS
  2. PROCAINE [Concomitant]
     Active Substance: PROCAINE
     Indication: BACK PAIN
     Route: 008
  3. TAE BULK UNSPECIFIED [Suspect]
     Active Substance: ALLERGENIC EXTRACTS
     Indication: HYPERSENSITIVITY
     Dates: start: 2013
  4. HCG [Concomitant]
     Active Substance: GONADOTROPHIN, CHORIONIC
     Indication: WEIGHT DECREASED

REACTIONS (8)
  - Off label use [Recovered/Resolved]
  - Hand deformity [Not Recovered/Not Resolved]
  - Drug monitoring procedure not performed [Recovered/Resolved]
  - Spinal deformity [Not Recovered/Not Resolved]
  - Skin discolouration [None]
  - Knee deformity [Not Recovered/Not Resolved]
  - Foot deformity [Not Recovered/Not Resolved]
  - Rosacea [Recovering/Resolving]
